FAERS Safety Report 23789372 (Version 5)
Quarter: 2025Q3

REPORT INFORMATION
  Report Type: Spontaneous
  Country: US (occurrence: US)
  Receive Date: 20240426
  Receipt Date: 20250905
  Transmission Date: 20251020
  Serious: Yes (Hospitalization, Other)
  Sender: PFIZER
  Company Number: US-PFIZER INC-PV202400054218

PATIENT
  Age: 53 Year
  Sex: Female

DRUGS (3)
  1. IBRANCE [Suspect]
     Active Substance: PALBOCICLIB
     Indication: Breast cancer metastatic
     Route: 048
     Dates: start: 201804
  2. IBRANCE [Suspect]
     Active Substance: PALBOCICLIB
     Route: 048
  3. LETROZOLE [Suspect]
     Active Substance: LETROZOLE
     Indication: Breast cancer metastatic
     Route: 048
     Dates: start: 201804

REACTIONS (9)
  - Neutropenia [Unknown]
  - Hepatic cirrhosis [Recovering/Resolving]
  - Type 2 diabetes mellitus [Recovering/Resolving]
  - Neuropathy peripheral [Recovering/Resolving]
  - Pruritus [Recovered/Resolved]
  - Skin disorder [Recovered/Resolved]
  - Nasopharyngitis [Recovering/Resolving]
  - Fatigue [Unknown]
  - Neuralgia [Not Recovered/Not Resolved]

NARRATIVE: CASE EVENT DATE: 20250123
